FAERS Safety Report 6801352-5 (Version None)
Quarter: 2010Q2

REPORT INFORMATION
  Report Type: 
  Country: None (occurrence: None)
  Receive Date: 20100629
  Receipt Date: 20100624
  Transmission Date: 20101027
  Serious: Yes (Hospitalization)
  Sender: FDA-Public Use
  Company Number: A0863064A

PATIENT
  Age: 69 Year
  Sex: Female

DRUGS (8)
  1. RYTHMOL SR [Suspect]
     Indication: ARRHYTHMIA
     Dosage: 225MG TWICE PER DAY
     Route: 048
     Dates: start: 20090401
  2. PROPAFENONE HCL [Suspect]
     Dosage: 325MG THREE TIMES PER DAY
     Route: 048
     Dates: start: 20100527, end: 20100527
  3. CARDIZEM [Concomitant]
  4. COUMADIN [Concomitant]
  5. WARFARIN [Concomitant]
  6. LEXAPRO [Concomitant]
  7. PRILOSEC [Concomitant]
  8. XANAX [Concomitant]

REACTIONS (2)
  - ATRIAL FIBRILLATION [None]
  - HYPERTENSION [None]
